FAERS Safety Report 23187239 (Version 1)
Quarter: 2023Q4

REPORT INFORMATION
  Report Type: Spontaneous
  Country: US (occurrence: US)
  Receive Date: 20231115
  Receipt Date: 20231115
  Transmission Date: 20240110
  Serious: No
  Sender: FDA-Public Use
  Company Number: US-MYLANLABS-2023M1112555

PATIENT
  Sex: Female
  Weight: 56.25 kg

DRUGS (1)
  1. AMLODIPINE [Suspect]
     Active Substance: AMLODIPINE BESYLATE
     Indication: Blood pressure abnormal
     Dosage: 2.5 DOSAGE FORM, QD
     Route: 065

REACTIONS (3)
  - Hypoacusis [Unknown]
  - Pain [Unknown]
  - Off label use [Unknown]
